FAERS Safety Report 4471461-7 (Version None)
Quarter: 2004Q4

REPORT INFORMATION
  Report Type: 
  Country: None (occurrence: None)
  Receive Date: 20041006
  Receipt Date: 20040923
  Transmission Date: 20050328
  Serious: Yes (Life-Threatening, Hospitalization, Disabling, Other)
  Sender: FDA-Public Use
  Company Number: 2004056114

PATIENT
  Age: 69 Year
  Sex: Female

DRUGS (7)
  1. SORTIS (ATORVASTATIN) [Suspect]
     Indication: HYPERLIPIDAEMIA
     Dosage: 20 MG (20 MG, 1 IN 1 D), ORAL
     Route: 048
  2. RAMIPRIL [Concomitant]
  3. LEVOTHYROXINE SODIUM [Concomitant]
  4. ALLOPURINOL [Concomitant]
  5. GABAPENTIN [Concomitant]
  6. INSULIN [Concomitant]
  7. BISOPROLOL FUMARATE [Concomitant]

REACTIONS (38)
  - ABASIA [None]
  - ACTIVATED PARTIAL THROMBOPLASTIN TIME PROLONGED [None]
  - ANAEMIA [None]
  - AUTOIMMUNE DISORDER [None]
  - BLISTER INFECTED [None]
  - BLOOD BILIRUBIN INCREASED [None]
  - BLOOD CHLORIDE INCREASED [None]
  - CANDIDIASIS [None]
  - DIABETES MELLITUS INSULIN-DEPENDENT [None]
  - DISTURBANCE IN ATTENTION [None]
  - DRUG ERUPTION [None]
  - DRUG TOXICITY [None]
  - DUODENAL ULCER HAEMORRHAGE [None]
  - DYSPHASIA [None]
  - DYSSTASIA [None]
  - ECZEMA [None]
  - EXANTHEM [None]
  - GASTROENTERITIS NORWALK VIRUS [None]
  - GENERAL PHYSICAL HEALTH DETERIORATION [None]
  - GUILLAIN-BARRE SYNDROME [None]
  - HYPERTENSION [None]
  - HYPERTROPHY [None]
  - HYPOKALAEMIA [None]
  - INFLAMMATION [None]
  - INTERNATIONAL NORMALISED RATIO INCREASED [None]
  - MENTAL DISORDER DUE TO A GENERAL MEDICAL CONDITION [None]
  - NEURALGIC AMYOTROPHY [None]
  - PARAPARESIS [None]
  - POLYNEUROPATHY [None]
  - PROTHROMBIN TIME SHORTENED [None]
  - RENAL DISORDER [None]
  - RENAL FAILURE [None]
  - RENAL FAILURE ACUTE [None]
  - RHABDOMYOLYSIS [None]
  - SEPSIS [None]
  - SERUM FERRITIN INCREASED [None]
  - URINARY TRACT INFECTION ENTEROCOCCAL [None]
  - VIRAL INFECTION [None]
